FAERS Safety Report 4931424-1 (Version None)
Quarter: 2006Q1

REPORT INFORMATION
  Report Type: 
  Country: None (occurrence: None)
  Receive Date: 20060228
  Receipt Date: 20060220
  Transmission Date: 20060701
  Serious: Yes (Disabling, Other)
  Sender: FDA-Public Use
  Company Number: 2006025292

PATIENT
  Age: 58 Year
  Sex: Male
  Weight: 73.9363 kg

DRUGS (4)
  1. LIPITOR [Suspect]
     Indication: BLOOD CHOLESTEROL INCREASED
     Dosage: 10 MG (10 MG, 1 IN 1 D), ORAL
     Route: 048
     Dates: start: 20000101
  2. LOTREL [Concomitant]
  3. SOMA [Concomitant]
  4. VICODIN [Concomitant]

REACTIONS (1)
  - BREAST CANCER FEMALE [None]
